FAERS Safety Report 6397359-5 (Version None)
Quarter: 2009Q4

REPORT INFORMATION
  Report Type: 
  Country: None (occurrence: None)
  Receive Date: 20091012
  Receipt Date: 20090929
  Transmission Date: 20100525
  Serious: Yes (Other)
  Sender: FDA-Public Use
  Company Number: PHEH2009US12492

PATIENT
  Age: 75 Year
  Sex: Female
  Weight: 53.515 kg

DRUGS (2)
  1. RECLAST [Suspect]
     Indication: OSTEOPOROSIS
     Dosage: 5 MG ONCE YEARLY
     Dates: start: 20090929, end: 20090929
  2. RECLAST [Suspect]
     Dosage: UNK

REACTIONS (7)
  - BLOOD PRESSURE DECREASED [None]
  - DEPRESSED LEVEL OF CONSCIOUSNESS [None]
  - DIZZINESS [None]
  - HEART RATE INCREASED [None]
  - MIOSIS [None]
  - NAUSEA [None]
  - VOMITING [None]
